FAERS Safety Report 26131299 (Version 1)
Quarter: 2025Q4

REPORT INFORMATION
  Report Type: Spontaneous
  Country: CN (occurrence: CN)
  Receive Date: 20251208
  Receipt Date: 20251208
  Transmission Date: 20260117
  Serious: Yes (Hospitalization)
  Sender: PFIZER
  Company Number: CN-PFIZER INC-PV202500115104

PATIENT
  Age: 34 Year
  Sex: Male

DRUGS (1)
  1. XYNTHA [Suspect]
     Active Substance: MOROCTOCOG ALFA
     Dosage: 2 IU, 1X/DAY
     Route: 040

REACTIONS (5)
  - Arthropathy [Unknown]
  - Soft tissue swelling [Unknown]
  - Post procedural complication [Unknown]
  - Bone hypertrophy [Unknown]
  - Bone density decreased [Unknown]
